FAERS Safety Report 26088983 (Version 2)
Quarter: 2025Q4

REPORT INFORMATION
  Report Type: Spontaneous
  Country: US (occurrence: US)
  Receive Date: 20251125
  Receipt Date: 20251202
  Transmission Date: 20260118
  Serious: Yes (Other)
  Sender: BAYER HEALTHCARE PHARMACEUTICALS INC.
  Company Number: US-BAYER-2025A155941

PATIENT
  Age: 23 Year
  Sex: Male

DRUGS (7)
  1. JIVI [Suspect]
     Active Substance: DAMOCTOCOG ALFA PEGOL
     Indication: Factor VIII deficiency
     Dosage: STRENGTH: 3000; INFUSED: 3000 UNIT
     Route: 042
     Dates: start: 202311
  2. JIVI [Suspect]
     Active Substance: DAMOCTOCOG ALFA PEGOL
     Indication: Factor VIII deficiency
     Dosage: STRENGTH: 1000; INFUSED: 2000UNIT
     Route: 042
     Dates: start: 202311
  3. JIVI [Suspect]
     Active Substance: DAMOCTOCOG ALFA PEGOL
     Indication: Factor VIII deficiency
     Dosage: 3 DF
     Route: 042
     Dates: start: 20251117
  4. JIVI [Suspect]
     Active Substance: DAMOCTOCOG ALFA PEGOL
     Indication: Factor VIII deficiency
     Dosage: JIVI 3000 IU, PRN/ 5000 UNITS
     Route: 042
     Dates: start: 202311
  5. JIVI [Suspect]
     Active Substance: DAMOCTOCOG ALFA PEGOL
     Indication: Factor VIII deficiency
     Dosage: 3 DF
  6. HEMLIBRA [Concomitant]
     Active Substance: EMICIZUMAB-KXWH
  7. SODIUM CHLORIDE [Concomitant]
     Active Substance: SODIUM CHLORIDE
     Dosage: 5 ML

REACTIONS (4)
  - Intra-abdominal haemorrhage [None]
  - Haemorrhage [None]
  - Poor venous access [None]
  - Injury [None]

NARRATIVE: CASE EVENT DATE: 20251117
